FAERS Safety Report 4677837-7 (Version None)
Quarter: 2005Q2

REPORT INFORMATION
  Report Type: 
  Country: None (occurrence: None)
  Receive Date: 20050527
  Receipt Date: 20050527
  Transmission Date: 20051028
  Serious: No
  Sender: FDA-Public Use
  Company Number: None

PATIENT
  Age: 24 Year
  Sex: Female
  Weight: 64.4108 kg

DRUGS (2)
  1. DROPERIDOL [Suspect]
     Indication: NAUSEA
     Dosage: 1.25 MG IV X 1
     Route: 042
  2. DROPERIDOL [Suspect]
     Indication: VOMITING
     Dosage: 1.25 MG IV X 1
     Route: 042

REACTIONS (5)
  - BRUXISM [None]
  - DYSTONIA [None]
  - MUSCLE TIGHTNESS [None]
  - PAIN [None]
  - THROAT TIGHTNESS [None]
